FAERS Safety Report 8575412-5 (Version None)
Quarter: 2012Q3

REPORT INFORMATION
  Report Type: 
  Country: None (occurrence: None)
  Receive Date: 20120807
  Receipt Date: 20120802
  Transmission Date: 20120928
  Serious: Yes (Life-Threatening, Hospitalization)
  Sender: FDA-Public Use
  Company Number: US-NOVOPROD-355967

PATIENT
  Age: 74 Year
  Sex: Male
  Weight: 95.4 kg

DRUGS (12)
  1. ASPIRIN [Concomitant]
     Indication: PROPHYLAXIS
     Dosage: 162.0 MG, QD
     Dates: start: 20120514, end: 20120514
  2. COLACE [Concomitant]
     Indication: CONSTIPATION
     Dosage: 200 MG, QD
     Dates: start: 20120514, end: 20120515
  3. MAALOX PLUS                        /00018101/ [Concomitant]
     Indication: DYSPEPSIA
     Dosage: 30.0 MG, QD
     Dates: start: 20120514, end: 20120515
  4. MORPHINE SULFATE [Concomitant]
     Indication: CHEST DISCOMFORT
     Dosage: 6.0 MG, QD
     Dates: start: 20120514, end: 20120515
  5. VERSED [Concomitant]
     Indication: CHEST DISCOMFORT
     Dosage: 1.0 MG, QD
     Dates: start: 20120514, end: 20120514
  6. ASPIRIN [Concomitant]
     Dosage: 325.0 MG, QD
     Dates: start: 20120514, end: 20120515
  7. FENTANYL [Concomitant]
     Indication: CHEST DISCOMFORT
     Dosage: 50 MCG, QD
     Dates: start: 20120514, end: 20120514
  8. VICTOZA [Suspect]
     Indication: TYPE 2 DIABETES MELLITUS
     Dosage: 1.8 MG, QD
     Route: 058
     Dates: start: 20111020
  9. EFFIENT [Concomitant]
     Indication: PROPHYLAXIS
     Dosage: 10 MG, QD
     Dates: start: 20120515
  10. BENADRYL [Concomitant]
     Indication: HYPERSENSITIVITY
     Dosage: 0 MG, QD
     Dates: start: 20120514, end: 20120514
  11. HEPARIN [Concomitant]
     Indication: CHEST DISCOMFORT
     Dosage: 10000 U, QD
     Dates: start: 20120514, end: 20120514
  12. PLAVIX [Concomitant]
     Indication: PROPHYLAXIS
     Dosage: 600.0 MG, QD
     Dates: start: 20120514, end: 20120514

REACTIONS (2)
  - CORONARY ARTERY DISEASE [None]
  - PERCUTANEOUS CORONARY INTERVENTION [None]
